FAERS Safety Report 10313161 (Version 1)
Quarter: 2014Q3

REPORT INFORMATION
  Report Type: Report from Study
  Country: PL (occurrence: PL)
  Receive Date: 20140718
  Receipt Date: 20140718
  Transmission Date: 20150326
  Serious: Yes (Death)
  Sender: FDA-Public Use
  Company Number: PL-ROXANE LABORATORIES, INC.-2014-BI-32202GD

PATIENT
  Sex: Male

DRUGS (1)
  1. PREDNISONE. [Suspect]
     Active Substance: PREDNISONE
     Indication: HYPEREOSINOPHILIC SYNDROME
     Route: 065

REACTIONS (1)
  - Myocardial infarction [Fatal]
